FAERS Safety Report 13227100 (Version 1)
Quarter: 2017Q1

REPORT INFORMATION
  Report Type: Spontaneous
  Country: US (occurrence: US)
  Receive Date: 20170213
  Receipt Date: 20170213
  Transmission Date: 20170428
  Serious: No
  Sender: FDA-Public Use
  Company Number: US-IGSA-GTI004603

PATIENT
  Age: 47 Year
  Sex: Female
  Weight: 55 kg

DRUGS (21)
  1. CLARITIN [Concomitant]
     Active Substance: LORATADINE
  2. CYTOMEL [Concomitant]
     Active Substance: LIOTHYRONINE SODIUM
  3. PROGESTERONE. [Concomitant]
     Active Substance: PROGESTERONE
  4. PYRIDOXINE HCL [Concomitant]
     Active Substance: PYRIDOXINE HYDROCHLORIDE
  5. PHOSPHATIDYL SERINE [Concomitant]
     Active Substance: PHOSPHATIDYL SERINE
  6. VITAMIN C /08066501/ [Concomitant]
  7. MOLYBDENUM [Concomitant]
     Active Substance: MOLYBDENUM
  8. VENTOLIN HFA [Concomitant]
     Active Substance: ALBUTEROL SULFATE
  9. NATURE-THROID [Concomitant]
     Active Substance: THYROID, PORCINE
  10. COENZYME Q10 [Concomitant]
     Active Substance: UBIDECARENONE
  11. URSODIOL. [Concomitant]
     Active Substance: URSODIOL
  12. PROLASTIN-C [Suspect]
     Active Substance: .ALPHA.1-PROTEINASE INHIBITOR HUMAN
     Indication: ALPHA-1 ANTI-TRYPSIN DEFICIENCY
     Route: 042
     Dates: start: 20160816
  13. ALPHA LIPOIC ACID [Concomitant]
     Active Substance: .ALPHA.-LIPOIC ACID
  14. VIT B-6 [Concomitant]
  15. VITAMIN D [Concomitant]
     Active Substance: CHOLECALCIFEROL
  16. SELENIUM [Concomitant]
     Active Substance: SELENIUM
  17. L-CARNITINE /00878601/ [Concomitant]
     Active Substance: LEVOCARNITINE
  18. OMEGA 3 FISH OIL [Concomitant]
     Active Substance: FISH OIL\OMEGA-3 FATTY ACIDS
  19. ZINC PICOLINATE [Concomitant]
     Active Substance: ZINC PICOLINATE
  20. VITAMIN E /00110504/ [Concomitant]
  21. HYDROXOCOBALAMIN [Concomitant]
     Active Substance: HYDROXOCOBALAMIN

REACTIONS (3)
  - Chest discomfort [Unknown]
  - Weight increased [Unknown]
  - Dyspnoea [Unknown]

NARRATIVE: CASE EVENT DATE: 20160816
